FAERS Safety Report 9309690 (Version 2)
Quarter: 2014Q1

REPORT INFORMATION
  Report Type: Report from Study
  Country: US (occurrence: US)
  Receive Date: 20130525
  Receipt Date: 20140212
  Transmission Date: 20141002
  Serious: Yes (Death, Hospitalization)
  Sender: FDA-Public Use
  Company Number: US-BRISTOL-MYERS SQUIBB COMPANY-18732826

PATIENT
  Age: 38 Year
  Sex: Male

DRUGS (1)
  1. EXENATIDE [Suspect]
     Dosage: STOPPED:26FEB13-12MAR13?DURATION:15D
     Route: 058
     Dates: start: 20130226, end: 20130312

REACTIONS (5)
  - Death [Fatal]
  - Hypoxic-ischaemic encephalopathy [Fatal]
  - Cardiac arrest [Recovered/Resolved with Sequelae]
  - Renal failure acute [Recovered/Resolved]
  - Pneumonia [Recovered/Resolved]
